FAERS Safety Report 7120123-6 (Version None)
Quarter: 2010Q4

REPORT INFORMATION
  Report Type: 
  Country: None (occurrence: None)
  Receive Date: 20101123
  Receipt Date: 20101114
  Transmission Date: 20110411
  Serious: Yes (Other)
  Sender: FDA-Public Use
  Company Number: US-B.I. PHARMACEUTICALS,INC./RIDGEFIELD-2010-BP-13024PF

PATIENT
  Sex: Female

DRUGS (10)
  1. SPIRIVA [Suspect]
     Indication: CHRONIC OBSTRUCTIVE PULMONARY DISEASE
  2. CHANTIX [Suspect]
     Indication: SMOKING CESSATION THERAPY
     Route: 048
     Dates: start: 20101114
  3. LIPITOR [Suspect]
     Route: 048
  4. AZITHROMYCIN [Suspect]
  5. PREDNISONE [Suspect]
  6. HYDROCHLOROTHIAZIDE [Suspect]
  7. ADVAIR DISKUS 100/50 [Suspect]
     Indication: CHRONIC OBSTRUCTIVE PULMONARY DISEASE
  8. VASERETIC [Suspect]
     Indication: HYPERTENSION
     Route: 048
  9. NEXIUM [Suspect]
  10. PERCOCET [Suspect]
     Route: 048

REACTIONS (11)
  - ABNORMAL DREAMS [None]
  - CONFUSIONAL STATE [None]
  - DIARRHOEA [None]
  - DIZZINESS [None]
  - HEADACHE [None]
  - INSOMNIA [None]
  - MUSCLE SPASMS [None]
  - NERVOUSNESS [None]
  - PANIC ATTACK [None]
  - RESTLESSNESS [None]
  - VISION BLURRED [None]
